FAERS Safety Report 6544259-3 (Version None)
Quarter: 2010Q1

REPORT INFORMATION
  Report Type: 
  Country: None (occurrence: None)
  Receive Date: 20100119
  Receipt Date: 20100119
  Transmission Date: 20100710
  Serious: Yes (Other)
  Sender: FDA-Public Use
  Company Number: None

PATIENT
  Age: 50 Year
  Sex: Female
  Weight: 81.6475 kg

DRUGS (2)
  1. ROLAIDS [Suspect]
     Indication: DYSPEPSIA
     Dosage: 2 TABLETS 3 TIMES A DAY PO
     Route: 048
     Dates: start: 20091201, end: 20100116
  2. ROLAIDS [Suspect]
     Indication: GASTROOESOPHAGEAL REFLUX DISEASE
     Dosage: 2 TABLETS 3 TIMES A DAY PO
     Route: 048
     Dates: start: 20091201, end: 20100116

REACTIONS (6)
  - COUGH [None]
  - HYPERSENSITIVITY [None]
  - INFLUENZA LIKE ILLNESS [None]
  - NO THERAPEUTIC RESPONSE [None]
  - PRODUCT QUALITY ISSUE [None]
  - WHEEZING [None]
